FAERS Safety Report 4430238-9 (Version None)
Quarter: 2004Q3

REPORT INFORMATION
  Report Type: 
  Country: None (occurrence: None)
  Receive Date: 20040820
  Receipt Date: 20040722
  Transmission Date: 20050211
  Serious: Yes (Life-Threatening, Hospitalization, Other)
  Sender: FDA-Public Use
  Company Number: US-GLAXOSMITHKLINE-A0519487A

PATIENT
  Sex: Male

DRUGS (5)
  1. LAMICTAL [Suspect]
     Indication: BIPOLAR DISORDER
     Dosage: 25MG PER DAY
     Route: 048
     Dates: start: 20040601, end: 20040725
  2. GEODON [Concomitant]
     Dosage: 60MG PER DAY
     Route: 048
     Dates: start: 20040701
  3. WELLBUTRIN [Concomitant]
     Dosage: 75MG PER DAY
     Route: 048
     Dates: start: 20040401
  4. EFFEXOR XR [Concomitant]
     Dosage: 2TAB PER DAY
     Route: 048
     Dates: start: 20040101
  5. ESKALITH [Concomitant]
     Dosage: 450MG PER DAY
     Dates: start: 20010101

REACTIONS (11)
  - CONFUSIONAL STATE [None]
  - HEADACHE [None]
  - MENINGISM [None]
  - NAUSEA [None]
  - PYREXIA [None]
  - RASH GENERALISED [None]
  - RASH MACULO-PAPULAR [None]
  - STEVENS-JOHNSON SYNDROME [None]
  - THROMBOCYTOPENIA [None]
  - TRANSAMINASES INCREASED [None]
  - VIRAL INFECTION [None]
